FAERS Safety Report 13877405 (Version 1)
Quarter: 2017Q3

REPORT INFORMATION
  Report Type: Spontaneous
  Country: US (occurrence: US)
  Receive Date: 20170817
  Receipt Date: 20170817
  Transmission Date: 20171127
  Serious: Yes (Hospitalization)
  Sender: FDA-Public Use
  Company Number: US-PFIZER INC-2017350773

PATIENT
  Age: 57 Year
  Sex: Male

DRUGS (1)
  1. HYDROCORTISONE. [Suspect]
     Active Substance: HYDROCORTISONE
     Indication: HYPOPITUITARISM
     Dosage: 10 MG, UNK (TAKE 2 TABLETS IN THE MORNING AND ONE TABLET IN THE EVENING)
     Route: 048

REACTIONS (7)
  - Malaise [Unknown]
  - Hyponatraemia [Unknown]
  - Abdominal pain [Recovered/Resolved]
  - Abdominal discomfort [Recovering/Resolving]
  - Dizziness [Unknown]
  - Decreased appetite [Unknown]
  - Diarrhoea [Unknown]
